FAERS Safety Report 10543248 (Version 1)
Quarter: 2014Q4

REPORT INFORMATION
  Report Type: Spontaneous
  Country: US (occurrence: None)
  Receive Date: 20141010
  Receipt Date: 20141010
  Transmission Date: 20150529
  Serious: Yes (Other)
  Sender: FDA-Public Use
  Company Number: 163-POMAL-14073036

PATIENT
  Age: 60 Year
  Sex: Female
  Weight: 59 kg

DRUGS (16)
  1. POMALYST [Suspect]
     Active Substance: POMALIDOMIDE
     Indication: PLASMA CELL MYELOMA
     Dosage: 4 MG, 1 IN 1 D, PO
     Route: 048
     Dates: start: 20131203
  2. VERAPAMIL [Concomitant]
     Active Substance: VERAPAMIL HYDROCHLORIDE
  3. VALACYCLOVIR ( VALACICLOVIR HYDROCHLORIDE) [Concomitant]
  4. GABAPENTIN. [Concomitant]
     Active Substance: GABAPENTIN
  5. FOLIC ACID ( FOLIC ACID) [Concomitant]
  6. TORSEMIDE ( TORASEMIDE) [Concomitant]
  7. DEXAMETHASONE. [Concomitant]
     Active Substance: DEXAMETHASONE
  8. FENTANYL. [Concomitant]
     Active Substance: FENTANYL
  9. ASPIRIN ( ACETYLSALICYLIC ACID) [Concomitant]
  10. VITAMIN B6 ( PYRIDOXINE HYDROCHLORIDE) [Concomitant]
  11. COLACE ( DOCUSATE SODIUM) [Concomitant]
  12. POTASSIUM [Concomitant]
     Active Substance: POTASSIUM
  13. AMBIEN ( ZOLPIDEM TARTRATE) [Concomitant]
  14. OMEPRAZOLE. [Concomitant]
     Active Substance: OMEPRAZOLE
  15. CALCIUM [Concomitant]
     Active Substance: CALCIUM
  16. MULTIVITAMINS [Concomitant]
     Active Substance: VITAMINS

REACTIONS (1)
  - Laboratory test abnormal [None]
